FAERS Safety Report 8763418 (Version 1)
Quarter: 2012Q4

REPORT INFORMATION
  Report Type: 
  Country: CO (occurrence: CO)
  Receive Date: 20120831
  Receipt Date: 20120831
  Transmission Date: 20130627
  Serious: Yes (Other)
  Sender: FDA-Public Use
  Company Number: CO-AMGEN-COLSP2012054592

PATIENT
  Age: 41 Year
  Sex: Female

DRUGS (5)
  1. ENBREL [Suspect]
     Indication: RHEUMATOID ARTHRITIS
     Dosage: 50 mg, weekly
     Route: 058
     Dates: start: 2005
  2. METHOTREXATE [Concomitant]
     Indication: RHEUMATOID ARTHRITIS
     Dosage: 2 tablets, weekly
     Route: 048
     Dates: start: 2008
  3. PREDNISOLONE [Concomitant]
     Indication: RHEUMATOID ARTHRITIS
     Dosage: UNK
     Route: 048
     Dates: start: 2004
  4. CHLOROQUINE [Concomitant]
     Dosage: UNK
     Route: 048
     Dates: start: 2004
  5. ACETAMINOPHEN [Concomitant]
     Indication: PAIN
     Route: 065

REACTIONS (7)
  - Cervix carcinoma [Recovered/Resolved]
  - Coma [Recovered/Resolved]
  - Gallbladder disorder [Unknown]
  - Inguinal hernia [Recovered/Resolved]
  - Gallbladder pain [Not Recovered/Not Resolved]
  - Renal pain [Not Recovered/Not Resolved]
  - Bacterial infection [Recovered/Resolved]
